FAERS Safety Report 21897890 (Version 1)
Quarter: 2023Q1

REPORT INFORMATION
  Report Type: Spontaneous
  Country: US (occurrence: US)
  Receive Date: 20230123
  Receipt Date: 20230123
  Transmission Date: 20230418
  Serious: No
  Sender: FDA-Public Use
  Company Number: US-PFIZER INC-PV202300012605

PATIENT
  Age: 86 Year
  Sex: Male

DRUGS (2)
  1. DIFLUCAN [Interacting]
     Active Substance: FLUCONAZOLE
     Dosage: UNK
  2. VENCLEXTA [Interacting]
     Active Substance: VENETOCLAX
     Dosage: UNK

REACTIONS (1)
  - Drug interaction [Unknown]
